FAERS Safety Report 24613513 (Version 1)
Quarter: 2024Q4

REPORT INFORMATION
  Report Type: Report from Study
  Country: BY (occurrence: BY)
  Receive Date: 20241113
  Receipt Date: 20241113
  Transmission Date: 20250115
  Serious: Yes (Death, Hospitalization)
  Sender: MYLAN
  Company Number: BY-MYLANLABS-2024M1101854

PATIENT
  Age: 60 Year
  Sex: Male
  Weight: 36 kg

DRUGS (11)
  1. PRETOMANID [Suspect]
     Active Substance: PRETOMANID
     Indication: Product used for unknown indication
     Dosage: 200 MILLIGRAM, QD
     Route: 048
     Dates: start: 20230819, end: 20231201
  2. BEDAQUILINE [Suspect]
     Active Substance: BEDAQUILINE
     Indication: Product used for unknown indication
     Dosage: 400 MILLIGRAM, QD (ONCE A DAY FOR 2 WEEKS)
     Route: 048
     Dates: start: 20230819
  3. BEDAQUILINE [Suspect]
     Active Substance: BEDAQUILINE
     Dosage: 200 MILLIGRAM, 3XW (THREE TIMES A WEEK)
     Route: 048
     Dates: end: 20231201
  4. LINEZOLID [Suspect]
     Active Substance: LINEZOLID
     Indication: Product used for unknown indication
     Dosage: 600 MILLIGRAM, QD (ONCE A DAY FOR 112 DOSES)
     Route: 048
     Dates: start: 20230819
  5. LINEZOLID [Suspect]
     Active Substance: LINEZOLID
     Dosage: 300 MILLIGRAM, QD (ONCE A DAY)
     Route: 065
     Dates: end: 20231201
  6. CLOFAZIMINE [Suspect]
     Active Substance: CLOFAZIMINE
     Indication: Product used for unknown indication
     Dosage: 100 MILLIGRAM, QD (ONCE A DAY)
     Route: 048
     Dates: start: 20230819, end: 20231201
  7. FENOTEROL HYDROBROMIDE\IPRATROPIUM BROMIDE [Concomitant]
     Active Substance: FENOTEROL HYDROBROMIDE\IPRATROPIUM BROMIDE
     Indication: Chronic obstructive pulmonary disease
     Dosage: 420 MICROGRAM (300+120 MICROGRAM)
     Route: 055
     Dates: start: 20230921, end: 20231210
  8. FORMOTEROL [Concomitant]
     Active Substance: FORMOTEROL
     Indication: Chronic obstructive pulmonary disease
     Dosage: 24 MICROGRAM
     Route: 048
     Dates: start: 20231116, end: 20231210
  9. ALBUTEROL [Concomitant]
     Active Substance: ALBUTEROL
     Indication: Chronic obstructive pulmonary disease
     Dosage: 600 MICROGRAM
     Route: 055
     Dates: start: 20230614, end: 20230907
  10. Tamsulosin obl [Concomitant]
     Indication: Benign prostatic hyperplasia
     Dosage: 400 MICROGRAM
     Route: 048
     Dates: start: 20231127, end: 20231210
  11. QUETIAPINE [Concomitant]
     Active Substance: QUETIAPINE
     Indication: Personality disorder
     Dosage: 50 MILLIGRAM
     Route: 048
     Dates: start: 20230822, end: 20231210

REACTIONS (2)
  - Cardiac arrest [Fatal]
  - Respiratory failure [Fatal]

NARRATIVE: CASE EVENT DATE: 20231201
